FAERS Safety Report 6290282-6 (Version None)
Quarter: 2009Q3

REPORT INFORMATION
  Report Type: 
  Country: None (occurrence: None)
  Receive Date: 20090730
  Receipt Date: 20090206
  Transmission Date: 20100115
  Serious: Yes (Other)
  Sender: FDA-Public Use
  Company Number: US-BRISTOL-MYERS SQUIBB COMPANY-14497333

PATIENT
  Age: 51 Year
  Sex: Female

DRUGS (1)
  1. COUMADIN [Suspect]
     Indication: THROMBOSIS PROPHYLAXIS

REACTIONS (3)
  - ABORTION SPONTANEOUS [None]
  - DRUG INEFFECTIVE [None]
  - PREGNANCY [None]
